FAERS Safety Report 4651896-X (Version None)
Quarter: 2005Q2

REPORT INFORMATION
  Report Type: 
  Country: None (occurrence: None)
  Receive Date: 20050504
  Receipt Date: 20050420
  Transmission Date: 20051028
  Serious: Yes (Other)
  Sender: FDA-Public Use
  Company Number: PHEH2005US04558

PATIENT
  Age: 92 Year
  Sex: Female

DRUGS (2)
  1. ZOMETA [Suspect]
     Indication: MULTIPLE MYELOMA
     Dosage: 4 MG EVERY 3 WEEKS
  2. THALIDOMIDE [Suspect]
     Dosage: ^FOR 5 YEARS^

REACTIONS (2)
  - INFECTION [None]
  - OSTEOMYELITIS [None]
